FAERS Safety Report 8875906 (Version 1)
Quarter: 2012Q4

REPORT INFORMATION
  Report Type: 
  Country: CA (occurrence: CA)
  Receive Date: 20121030
  Receipt Date: 20121030
  Transmission Date: 20130627
  Serious: Yes (Hospitalization, Other)
  Sender: FDA-Public Use
  Company Number: CA-009507513-1206USA01248

PATIENT

DRUGS (4)
  1. EZETROL [Suspect]
     Indication: BLOOD CHOLESTEROL
     Dosage: 10.0 mg, qd
     Route: 048
     Dates: start: 20110418, end: 201110
  2. ASPIRIN [Concomitant]
     Dosage: 81 mg, qd
  3. AMLODIPINE [Concomitant]
     Dosage: 5 mg, qd
  4. ATORVASTATIN CALCIUM [Concomitant]
     Dosage: 20 mg, hs

REACTIONS (4)
  - Cholelithiasis [Recovered/Resolved]
  - Lipids increased [Recovered/Resolved]
  - Pancreatitis [Recovered/Resolved]
  - Weight decreased [Recovered/Resolved]
